FAERS Safety Report 10221102 (Version 1)
Quarter: 2014Q2

REPORT INFORMATION
  Report Type: Spontaneous
  Country: US (occurrence: None)
  Receive Date: 20140605
  Receipt Date: 20140605
  Transmission Date: 20141212
  Serious: Yes (Hospitalization)
  Sender: FDA-Public Use
  Company Number: None

PATIENT
  Age: 88 Year
  Sex: Male
  Weight: 91.63 kg

DRUGS (5)
  1. ELIQUIS [Suspect]
     Indication: ATRIAL FIBRILLATION
     Route: 048
     Dates: start: 20130930, end: 20140602
  2. ASPIRIN [Concomitant]
  3. NAPROXEN [Concomitant]
  4. PANTOPRAZOLE [Concomitant]
  5. ELIQUIS [Concomitant]

REACTIONS (9)
  - Diarrhoea [None]
  - Rectal haemorrhage [None]
  - Haemorrhage urinary tract [None]
  - Abdominal pain [None]
  - Abdominal distension [None]
  - Fall [None]
  - Renal failure acute [None]
  - Dehydration [None]
  - Increased tendency to bruise [None]
